FAERS Safety Report 16850793 (Version 1)
Quarter: 2019Q3

REPORT INFORMATION
  Report Type: Spontaneous
  Country: US (occurrence: US)
  Receive Date: 20190925
  Receipt Date: 20190925
  Transmission Date: 20191005
  Serious: No
  Sender: FDA-Public Use
  Company Number: US-THERAPEUTICSMD-2019TMD01248

PATIENT
  Sex: Female
  Weight: 56.69 kg

DRUGS (2)
  1. IMVEXXY [Suspect]
     Active Substance: ESTRADIOL
     Indication: VULVOVAGINAL DRYNESS
     Dosage: 10 ?G, 2X/WEEK BEFORE BEDTIME
     Route: 067
     Dates: start: 201901, end: 2019
  2. IMVEXXY [Suspect]
     Active Substance: ESTRADIOL
     Dosage: 10 ?G, ONCE
     Route: 067
     Dates: start: 2019, end: 2019

REACTIONS (7)
  - Vulvovaginal pain [Recovered/Resolved]
  - Product dose omission [Recovered/Resolved]
  - Vulvovaginal discomfort [Recovered/Resolved]
  - Gait disturbance [Recovered/Resolved]
  - Off label use [Recovered/Resolved]
  - Genital blister [Recovered/Resolved]
  - Drug hypersensitivity [Recovered/Resolved]

NARRATIVE: CASE EVENT DATE: 2019
